FAERS Safety Report 7904100-0 (Version None)
Quarter: 2011Q4

REPORT INFORMATION
  Report Type: 
  Country: None (occurrence: None)
  Receive Date: 20111109
  Receipt Date: 20111028
  Transmission Date: 20120403
  Serious: No
  Sender: FDA-Public Use
  Company Number: US-B.I. PHARMACEUTICALS,INC./RIDGEFIELD-2011-BP-25255BP

PATIENT

DRUGS (9)
  1. KOMBIGLYZE XR [Concomitant]
     Indication: DIABETES MELLITUS
     Dosage: 5 MG
     Route: 048
  2. GLIMEPIRIDE [Concomitant]
     Indication: DIABETES MELLITUS
     Dosage: 1 MG
     Route: 048
  3. LISINOPRILA [Concomitant]
     Indication: HYPERTENSION
     Dosage: 10 MG
     Route: 048
  4. ACTOS [Concomitant]
     Indication: DIABETES MELLITUS
     Dosage: 15 MG
     Route: 048
  5. VYTORIN [Concomitant]
     Indication: BLOOD CHOLESTEROL
     Dosage: 10/40 MG
     Route: 048
  6. ASPIRIN [Concomitant]
     Indication: CARDIAC DISORDER
     Dosage: 81 MG
     Route: 065
  7. ATENOLOL [Concomitant]
     Indication: HYPERTENSION
     Dosage: 37.5 MG
     Route: 048
  8. PRADAXA [Suspect]
     Indication: ATRIAL FIBRILLATION
     Dosage: 300 MG
     Route: 048
     Dates: start: 20110901
  9. DIGOXIN [Concomitant]
     Indication: CORONARY ARTERY DISEASE
     Dosage: 0.25 MG
     Route: 048

REACTIONS (1)
  - WEIGHT DECREASED [None]
